FAERS Safety Report 4948957-4 (Version None)
Quarter: 2006Q1

REPORT INFORMATION
  Report Type: 
  Country: None (occurrence: None)
  Receive Date: 20060315
  Receipt Date: 20060223
  Transmission Date: 20060701
  Serious: Yes (Hospitalization)
  Sender: FDA-Public Use
  Company Number: USA0509109633

PATIENT
  Age: 58 Year
  Sex: Male

DRUGS (15)
  1. HUMALOG PEN [Suspect]
     Indication: DIABETES MELLITUS
     Dosage: AS NEEDED,
     Dates: start: 20040101
  2. HUMALOG PEN [Suspect]
  3. HUMALOG PEN (HUMALOG PEN) PEN, DISPOSABLE [Concomitant]
  4. LANTUS [Concomitant]
  5. COUMADIN [Concomitant]
  6. VASOTEC [Concomitant]
  7. FUROSEMIDE [Concomitant]
  8. LIPITOR [Concomitant]
  9. LEXAPRO /USA/ (ESCITALOPRAM) [Concomitant]
  10. PLAVIX [Concomitant]
  11. TRICOR [Concomitant]
  12. ALDACTONE [Concomitant]
  13. COREG [Concomitant]
  14. TERAZOSIN (TERAZOSIN) [Concomitant]
  15. NAPSYN (NAPROXEN) [Concomitant]

REACTIONS (7)
  - BLOOD GLUCOSE INCREASED [None]
  - CARDIAC FAILURE CONGESTIVE [None]
  - DEVICE FAILURE [None]
  - INCORRECT DOSE ADMINISTERED [None]
  - INJECTION SITE MASS [None]
  - PHARMACEUTICAL PRODUCT COMPLAINT [None]
  - WRONG TECHNIQUE IN DRUG USAGE PROCESS [None]
